FAERS Safety Report 17075353 (Version 3)
Quarter: 2020Q4

REPORT INFORMATION
  Report Type: Spontaneous
  Country: US (occurrence: US)
  Receive Date: 20191126
  Receipt Date: 20201229
  Transmission Date: 20210113
  Serious: Yes (Other)
  Sender: FDA-Public Use
  Company Number: US-PFIZER INC-2019505980

PATIENT
  Age: 47 Year
  Sex: Female

DRUGS (2)
  1. XELJANZ [Suspect]
     Active Substance: TOFACITINIB CITRATE
     Dosage: 5 MG, UNK
  2. XELJANZ [Suspect]
     Active Substance: TOFACITINIB CITRATE
     Dosage: 0.5 DF, 2X/DAY [XELJANZ 10MG (TAKE ONE-HALF TABLET BY MOUTH 2 TIMES A DAY)]
     Route: 048

REACTIONS (4)
  - Pain [Unknown]
  - Condition aggravated [Unknown]
  - Dysgeusia [Unknown]
  - COVID-19 [Unknown]
